FAERS Safety Report 5082677-3 (Version None)
Quarter: 2006Q3

REPORT INFORMATION
  Report Type: 
  Country: None (occurrence: None)
  Receive Date: 20060816
  Receipt Date: 20060816
  Transmission Date: 20061208
  Serious: Yes (Hospitalization)
  Sender: FDA-Public Use
  Company Number: None

PATIENT
  Sex: Female
  Weight: 72.8 kg

DRUGS (1)
  1. NAVELBINE [Suspect]
     Dosage: 106 MG

REACTIONS (4)
  - ANAEMIA [None]
  - HYPOTENSION [None]
  - LEUKOPENIA [None]
  - MALAISE [None]
